FAERS Safety Report 15159655 (Version 1)
Quarter: 2018Q3

REPORT INFORMATION
  Report Type: Spontaneous
  Country: TR (occurrence: TR)
  Receive Date: 20180718
  Receipt Date: 20180718
  Transmission Date: 20181010
  Serious: Yes (Other)
  Sender: FDA-Public Use
  Company Number: TR-JNJFOC-20180719811

PATIENT
  Age: 85 Year
  Sex: Male

DRUGS (2)
  1. DILTIZEM [Concomitant]
     Route: 065
  2. XARELTO [Suspect]
     Active Substance: RIVAROXABAN
     Indication: BLOOD CREATINE
     Route: 048

REACTIONS (1)
  - Cerebral infarction [Unknown]
